FAERS Safety Report 5392995-7 (Version None)
Quarter: 2007Q3

REPORT INFORMATION
  Report Type: 
  Country: None (occurrence: None)
  Receive Date: 20070719
  Receipt Date: 20070709
  Transmission Date: 20080115
  Serious: Yes (Death)
  Sender: FDA-Public Use
  Company Number: 20073935

PATIENT
  Age: 24 Year
  Sex: Male

DRUGS (1)
  1. LIORESAL [Suspect]
     Indication: MUSCLE SPASTICITY
     Dosage: 1206.9 MCG, DAILY, INTRATHECAL
     Route: 037

REACTIONS (3)
  - FUNGAL INFECTION [None]
  - INTESTINAL FISTULA [None]
  - URETHRAL FISTULA [None]
